FAERS Safety Report 7941280-5 (Version None)
Quarter: 2011Q4

REPORT INFORMATION
  Report Type: 
  Country: None (occurrence: None)
  Receive Date: 20111128
  Receipt Date: 20111116
  Transmission Date: 20120403
  Serious: Yes (Hospitalization, Other)
  Sender: FDA-Public Use
  Company Number: US-BAYER-2011-105727

PATIENT
  Age: 64 Year
  Sex: Male

DRUGS (4)
  1. ANALGESICS [Concomitant]
  2. SORAFENIB (RAF KINASE INHIBITOR) [Suspect]
     Indication: HEPATIC NEOPLASM MALIGNANT
     Dosage: 200 MG, BID
     Route: 048
     Dates: start: 20111028, end: 20111115
  3. SORAFENIB (RAF KINASE INHIBITOR) [Suspect]
     Dosage: 400 MG, BID
     Route: 048
  4. ANTIHYPERTENSIVES [Concomitant]

REACTIONS (14)
  - ABDOMINAL PAIN UPPER [None]
  - ABDOMINAL PAIN [None]
  - CONSTIPATION [None]
  - DECREASED APPETITE [None]
  - NECK PAIN [None]
  - BLOOD PRESSURE ABNORMAL [None]
  - FEELING HOT [None]
  - LOSS OF CONSCIOUSNESS [None]
  - ASTHENIA [None]
  - VOMITING [None]
  - HYPERHIDROSIS [None]
  - BACK PAIN [None]
  - HYPERTENSION [None]
  - EATING DISORDER [None]
